FAERS Safety Report 5152452-X (Version None)
Quarter: 2006Q4

REPORT INFORMATION
  Report Type: 
  Country: None (occurrence: None)
  Receive Date: 20061109
  Receipt Date: 20061102
  Transmission Date: 20070319
  Serious: Yes (Hospitalization)
  Sender: FDA-Public Use
  Company Number: CERZ-10588

PATIENT
  Age: 70 Year
  Sex: Male
  Weight: 83 kg

DRUGS (2)
  1. CEREZYME [Suspect]
     Indication: GAUCHER'S DISEASE
     Dosage: 26 U/KG Q2WKS; IV
     Route: 042
     Dates: start: 20031001
  2. CEREZYME [Suspect]
     Indication: GAUCHER'S DISEASE
     Dosage: 30 UG/KG Q2WKS; IV
     Route: 042
     Dates: start: 20010101, end: 20031001

REACTIONS (1)
  - LUNG ADENOCARCINOMA [None]
